FAERS Safety Report 4466817-2 (Version None)
Quarter: 2004Q4

REPORT INFORMATION
  Report Type: 
  Country: None (occurrence: None)
  Receive Date: 20041001
  Receipt Date: 20041001
  Transmission Date: 20050328
  Serious: Yes (Other)
  Sender: FDA-Public Use
  Company Number: None

PATIENT
  Age: 20 Year
  Sex: Female

DRUGS (1)
  1. METOCLOPRAMIDE [Suspect]
     Indication: NAUSEA
     Dosage: 10 MG ONCE INTRAVENOU
     Route: 042
     Dates: start: 20040930, end: 20040930

REACTIONS (3)
  - AGITATION [None]
  - IDIOSYNCRATIC DRUG REACTION [None]
  - SCREAMING [None]
